FAERS Safety Report 11245032 (Version 1)
Quarter: 2015Q3

REPORT INFORMATION
  Report Type: Spontaneous
  Country: DE (occurrence: DE)
  Receive Date: 20150707
  Receipt Date: 20150707
  Transmission Date: 20151125
  Serious: Yes (Congenital Anomaly, Other)
  Sender: FDA-Public Use
  Company Number: GXKR2015DE003220

PATIENT

DRUGS (1)
  1. METHADONE [Suspect]
     Active Substance: METHADONE HYDROCHLORIDE
     Indication: DRUG WITHDRAWAL SYNDROME
     Dosage: MATERNAL DOSE: 240 [MG/D ]/ 200 MG/D TO 240 MG/D - NO DETAILS WHEN DOSE WAS REDUCED OR INCREASED
     Route: 064
     Dates: start: 20140713, end: 20150316

REACTIONS (7)
  - Lactic acidosis [Recovered/Resolved]
  - Patent ductus arteriosus [Recovered/Resolved]
  - Atrial septal defect [Recovered/Resolved]
  - Hypoglycaemia neonatal [Recovered/Resolved]
  - Hyperinsulinaemia [Recovered/Resolved]
  - Coarctation of the aorta [Recovered/Resolved with Sequelae]
  - Drug withdrawal syndrome neonatal [Recovered/Resolved]

NARRATIVE: CASE EVENT DATE: 20150316
